FAERS Safety Report 9474409 (Version 2)
Quarter: 2013Q3

REPORT INFORMATION
  Report Type: Spontaneous
  Country: BE (occurrence: BE)
  Receive Date: 20130823
  Receipt Date: 20130926
  Transmission Date: 20140515
  Serious: Yes (Other)
  Sender: FDA-Public Use
  Company Number: BE-AMGEN-BELSP2013058708

PATIENT
  Age: 38 Year
  Sex: Female
  Weight: 56 kg

DRUGS (18)
  1. XGEVA [Suspect]
     Indication: METASTASES TO BONE
     Dosage: 120 MG, Q4WK
     Route: 058
     Dates: start: 201212
  2. XALKORI [Suspect]
     Indication: NON-SMALL CELL LUNG CANCER
     Dosage: 250 MG, BID
     Route: 048
     Dates: start: 20130528
  3. IBUPROFEN [Concomitant]
     Indication: METASTATIC PAIN
     Dosage: UNK UNK, QD
     Route: 048
  4. FOLAVIT [Concomitant]
     Indication: PROPHYLAXIS
     Dosage: UNK
  5. PANTOMED                           /01263204/ [Concomitant]
     Indication: NAUSEA
     Dosage: 20 MG, UNK
     Route: 048
  6. MEDROL                             /00049601/ [Concomitant]
     Indication: METASTASES TO CENTRAL NERVOUS SYSTEM
     Dosage: 4 MG, UNK
     Dates: start: 20130617
  7. MEDROL                             /00049601/ [Concomitant]
     Indication: PERIORBITAL OEDEMA
  8. XANAX [Concomitant]
     Dosage: UNK
  9. LITICAN                            /00690801/ [Concomitant]
     Indication: NAUSEA
     Dosage: UNK
  10. MOTILIUM                           /00498201/ [Concomitant]
     Indication: NAUSEA
     Dosage: UNK
  11. PARACODINE [Concomitant]
     Dosage: UNK
  12. DUOVENT [Concomitant]
     Dosage: UNK
  13. RIOPAN                             /00141701/ [Concomitant]
     Indication: NAUSEA
     Dosage: UNK
  14. CALCIUM CARBONATE [Concomitant]
     Dosage: UNK
  15. CALCIUM CITRATE [Concomitant]
  16. CHONDROITIN SULFATE SODIUM [Concomitant]
  17. CHOLECALCIFEROL [Concomitant]
     Dosage: UNK
  18. GLUCOSAMINE HYDROCHLORIDE [Concomitant]

REACTIONS (1)
  - Periorbital oedema [Recovered/Resolved]
